FAERS Safety Report 8708888 (Version 4)
Quarter: 2013Q1

REPORT INFORMATION
  Report Type: Report from Study
  Country: CA (occurrence: CA)
  Receive Date: 20120806
  Receipt Date: 20130111
  Transmission Date: 20140127
  Serious: Yes (Hospitalization, Other)
  Sender: FDA-Public Use
  Company Number: CA-ROCHE-1095148

PATIENT
  Age: 32 Year
  Sex: Male
  Weight: 66.74 kg

DRUGS (4)
  1. BEVACIZUMAB [Suspect]
     Indication: GLIOBLASTOMA
     Route: 042
     Dates: start: 20120712, end: 20120904
  2. DECADRON [Concomitant]
     Dosage: INCREASED DOSE
     Route: 065
  3. DIPHENHYDRAMINE HCL [Concomitant]
     Route: 048
     Dates: start: 20120726, end: 20120726
  4. METHYLPREDNISOLONE [Concomitant]
     Route: 042
     Dates: start: 20120726, end: 20120726

REACTIONS (7)
  - Hypoaesthesia oral [Not Recovered/Not Resolved]
  - Hordeolum [Not Recovered/Not Resolved]
  - Hypoaesthesia [Not Recovered/Not Resolved]
  - Headache [Not Recovered/Not Resolved]
  - Dizziness [Not Recovered/Not Resolved]
  - Disease progression [Not Recovered/Not Resolved]
  - Terminal state [Not Recovered/Not Resolved]
